FAERS Safety Report 8507100-5 (Version None)
Quarter: 2012Q3

REPORT INFORMATION
  Report Type: 
  Country: None (occurrence: None)
  Receive Date: 20120712
  Receipt Date: 20120703
  Transmission Date: 20120928
  Serious: Yes (Hospitalization, Other)
  Sender: FDA-Public Use
  Company Number: US-ABBOTT-12P-163-0953138-00

PATIENT
  Sex: Female

DRUGS (2)
  1. HUMIRA [Suspect]
     Indication: RHEUMATOID ARTHRITIS
     Route: 058
     Dates: start: 20080201, end: 20111101
  2. HUMIRA [Suspect]
     Indication: ASTHMA
     Route: 058
     Dates: start: 20120501

REACTIONS (4)
  - HEADACHE [None]
  - PAPILLOEDEMA [None]
  - VISUAL IMPAIRMENT [None]
  - MENINGIOMA [None]
